FAERS Safety Report 4272199-1 (Version None)
Quarter: 2004Q1

REPORT INFORMATION
  Report Type: 
  Country: None (occurrence: None)
  Receive Date: 20040114
  Receipt Date: 20040106
  Transmission Date: 20041129
  Serious: Yes (Congenital Anomaly)
  Sender: FDA-Public Use
  Company Number: 2003-BP-10637BP(1)

PATIENT
  Age: 0 Day
  Sex: Male

DRUGS (4)
  1. VIRAMUNE [Suspect]
     Indication: HIV INFECTION
     Dosage: SEE IMAGE
     Route: 015
     Dates: start: 20030930, end: 20031013
  2. VIRAMUNE [Suspect]
     Indication: HIV INFECTION
     Dosage: SEE IMAGE
     Route: 015
     Dates: start: 20031013, end: 20031123
  3. COMBIVIR [Concomitant]
  4. ZIDOVUDINE [Concomitant]

REACTIONS (5)
  - ADACTYLY [None]
  - CONGENITAL MUSCULOSKELETAL ANOMALY [None]
  - MATERNAL DRUGS AFFECTING FOETUS [None]
  - MICROGENIA [None]
  - PREMATURE BABY [None]
